FAERS Safety Report 9973310 (Version 1)
Quarter: 2014Q1

REPORT INFORMATION
  Report Type: Spontaneous
  Country: DE (occurrence: DE)
  Receive Date: 20140306
  Receipt Date: 20140306
  Transmission Date: 20141002
  Serious: Yes (Death)
  Sender: FDA-Public Use
  Company Number: DE-BRISTOL-MYERS SQUIBB COMPANY-20354650

PATIENT
  Age: 25 Year
  Sex: Male

DRUGS (2)
  1. ABILIFY [Suspect]
     Dates: start: 201301, end: 201310
  2. QUETIAPINE [Concomitant]

REACTIONS (1)
  - Multi-organ failure [Fatal]
